FAERS Safety Report 10953639 (Version 2)
Quarter: 2015Q2

REPORT INFORMATION
  Report Type: Spontaneous
  Country: US (occurrence: US)
  Receive Date: 20150325
  Receipt Date: 20150407
  Transmission Date: 20150821
  Serious: Yes (Life-Threatening, Congenital Anomaly, Other)
  Sender: FDA-Public Use
  Company Number: US-ELI_LILLY_AND_COMPANY-US201503006380

PATIENT

DRUGS (2)
  1. PROZAC [Suspect]
     Active Substance: FLUOXETINE HYDROCHLORIDE
     Indication: DEPRESSION
     Dosage: 10 MG, UNKNOWN
     Route: 064
  2. PROZAC [Suspect]
     Active Substance: FLUOXETINE HYDROCHLORIDE
     Dosage: 20 MG, UNKNOWN
     Route: 064

REACTIONS (13)
  - Supraventricular tachycardia [Recovered/Resolved]
  - Right atrial dilatation [Unknown]
  - Atelectasis neonatal [Recovered/Resolved]
  - Cardiomegaly [Recovered/Resolved]
  - Sternitis [Unknown]
  - Respiratory distress [Unknown]
  - Meconium in amniotic fluid [Unknown]
  - Aortic valve incompetence [Unknown]
  - Shoulder dystocia [Unknown]
  - Pneumothorax [Unknown]
  - Foetal exposure during pregnancy [Recovered/Resolved]
  - Transposition of the great vessels [Unknown]
  - Dilatation ventricular [Unknown]
